FAERS Safety Report 5303721-1 (Version None)
Quarter: 2007Q2

REPORT INFORMATION
  Report Type: 
  Country: None (occurrence: None)
  Receive Date: 20070420
  Receipt Date: 20070410
  Transmission Date: 20071010
  Serious: Yes (Death)
  Sender: FDA-Public Use
  Company Number: JP-MERCK-0703USA04511

PATIENT
  Age: 11 Day
  Sex: Male
  Weight: 1 kg

DRUGS (5)
  1. INDOCIN I.V. [Suspect]
     Indication: PATENT DUCTUS ARTERIOSUS
     Route: 042
     Dates: start: 20060610, end: 20060611
  2. SOLU-CORTEF [Suspect]
     Indication: SHOCK
     Route: 042
     Dates: start: 20060602, end: 20060602
  3. SOLU-CORTEF [Suspect]
     Route: 042
     Dates: start: 20060613, end: 20060613
  4. PITRESSIN [Suspect]
     Indication: SHOCK
     Route: 042
     Dates: start: 20060608, end: 20060614
  5. AMPICLOX (AMPICILLIN SODIUM (+) CLOXACILLIN SODIUM) [Concomitant]
     Indication: INFECTION
     Route: 042
     Dates: start: 20060612, end: 20060613

REACTIONS (1)
  - NECROTISING FASCIITIS [None]
